FAERS Safety Report 7046110-4 (Version None)
Quarter: 2010Q4

REPORT INFORMATION
  Report Type: 
  Country: None (occurrence: None)
  Receive Date: 20101014
  Receipt Date: 20101008
  Transmission Date: 20110411
  Serious: Yes (Hospitalization)
  Sender: FDA-Public Use
  Company Number: US-GILEAD-2010-0032197

PATIENT
  Sex: Female

DRUGS (14)
  1. LETAIRIS [Suspect]
     Indication: PULMONARY ARTERIAL HYPERTENSION
     Route: 048
     Dates: start: 20090519
  2. TYVASO [Concomitant]
  3. COUMADIN [Concomitant]
  4. ASPIR-TRIN [Concomitant]
  5. BENICAR HCT [Concomitant]
  6. CARDIZEM CD [Concomitant]
  7. DYAZIDE [Concomitant]
  8. PREDNISONE [Concomitant]
  9. AMOXICILLIN [Concomitant]
  10. CLINDAMYCIN [Concomitant]
  11. KLONOPIN [Concomitant]
  12. ELAVIL [Concomitant]
  13. NABUMETONE [Concomitant]
  14. FOLIC ACID [Concomitant]

REACTIONS (4)
  - CATHETERISATION CARDIAC [None]
  - DIZZINESS [None]
  - DYSPNOEA [None]
  - HEART RATE INCREASED [None]
